FAERS Safety Report 8551710-6 (Version None)
Quarter: 2012Q3

REPORT INFORMATION
  Report Type: 
  Country: None (occurrence: None)
  Receive Date: 20120730
  Receipt Date: 20120719
  Transmission Date: 20120928
  Serious: Yes (Other)
  Sender: FDA-Public Use
  Company Number: US-ASTRAZENECA-2012SE45695

PATIENT
  Age: 54 Year
  Sex: Male

DRUGS (2)
  1. CRESTOR [Suspect]
     Route: 048
  2. 13 DIFFERENT MEDICATIONS [Concomitant]

REACTIONS (3)
  - NEOPLASM MALIGNANT [None]
  - DIABETES MELLITUS [None]
  - MALAISE [None]
